FAERS Safety Report 12872060 (Version 4)
Quarter: 2016Q4

REPORT INFORMATION
  Report Type: Report from Study
  Country: CA (occurrence: CA)
  Receive Date: 20161021
  Receipt Date: 20161125
  Transmission Date: 20170207
  Serious: Yes (Death, Hospitalization)
  Sender: FDA-Public Use
  Company Number: CA-ROCHE-1844712

PATIENT
  Sex: Female

DRUGS (2)
  1. ALECENSARO [Suspect]
     Active Substance: ALECTINIB
     Dosage: FIRST RPAP DOSE
     Route: 048
     Dates: start: 20161019, end: 201611
  2. ALECENSARO [Suspect]
     Active Substance: ALECTINIB
     Indication: NON-SMALL CELL LUNG CANCER
     Route: 048

REACTIONS (2)
  - Gait disturbance [Unknown]
  - Death [Fatal]
